FAERS Safety Report 6260998-6 (Version None)
Quarter: 2009Q3

REPORT INFORMATION
  Report Type: 
  Country: None (occurrence: None)
  Receive Date: 20090709
  Receipt Date: 20090629
  Transmission Date: 20100115
  Serious: Yes (Hospitalization)
  Sender: FDA-Public Use
  Company Number: US-BIOGENIDEC-2008BI032070

PATIENT
  Age: 55 Year
  Sex: Female

DRUGS (6)
  1. AVONEX [Suspect]
     Indication: MULTIPLE SCLEROSIS
     Route: 030
     Dates: start: 19980801, end: 20051201
  2. AVONEX [Suspect]
     Route: 030
     Dates: start: 20060301, end: 20080101
  3. AVONEX [Suspect]
     Route: 030
     Dates: start: 20080401, end: 20080901
  4. AVONEX [Suspect]
     Route: 030
     Dates: start: 20090408
  5. PREDNISONE [Concomitant]
     Indication: RHEUMATOID ARTHRITIS
  6. METHOTREXATE [Concomitant]
     Indication: RHEUMATOID ARTHRITIS

REACTIONS (3)
  - FRACTURE NONUNION [None]
  - INFECTION [None]
  - POSTOPERATIVE WOUND INFECTION [None]
